FAERS Safety Report 8792417 (Version 1)
Quarter: 2012Q4

REPORT INFORMATION
  Report Type: 
  Country: US (occurrence: US)
  Receive Date: 20120918
  Receipt Date: 20120918
  Transmission Date: 20130627
  Serious: No
  Sender: FDA-Public Use
  Company Number: US-VERTEX PHARMACEUTICAL INC.-AE-2012-010347

PATIENT
  Sex: Male
  Weight: 86 kg

DRUGS (5)
  1. VX-950 [Suspect]
     Indication: HEPATITIS C
     Dosage: 750 mg, tid
     Route: 048
     Dates: start: 2012
  2. PEGASYS [Suspect]
     Indication: HEPATITIS C
     Dosage: 180 ?g, UNK
     Route: 058
     Dates: start: 2012
  3. RIBASPHERE [Concomitant]
     Indication: HEPATITIS C
     Dosage: 600 mg, bid
     Route: 048
     Dates: start: 2012
  4. NEURONTIN [Concomitant]
     Dosage: 30 mg, UNK
     Route: 048
  5. CLONAZEPAM [Concomitant]
     Dosage: 1 mg, UNK
     Route: 048

REACTIONS (10)
  - Dizziness [Not Recovered/Not Resolved]
  - Vision blurred [Unknown]
  - Eye pain [Not Recovered/Not Resolved]
  - Headache [Unknown]
  - Pyrexia [Unknown]
  - Chills [Unknown]
  - Decreased appetite [Unknown]
  - Injection site bruising [Unknown]
  - Injection site erythema [Unknown]
  - Fatigue [Unknown]
